FAERS Safety Report 10053617 (Version 1)
Quarter: 2014Q2

REPORT INFORMATION
  Report Type: Spontaneous
  Country: IT (occurrence: IT)
  Receive Date: 20140402
  Receipt Date: 20140402
  Transmission Date: 20141212
  Serious: Yes (Hospitalization)
  Sender: FDA-Public Use
  Company Number: IT-WATSON-2014-06201

PATIENT
  Age: 44 Year
  Sex: Female

DRUGS (3)
  1. DIAZEPAM [Suspect]
     Indication: DRUG ABUSE
     Dosage: 50 MG, TOTAL
     Route: 048
     Dates: start: 20140102, end: 20140102
  2. CIPRALEX [Concomitant]
     Indication: PRODUCT USED FOR UNKNOWN INDICATION
     Dosage: UNK
  3. MODALINA [Concomitant]
     Indication: PRODUCT USED FOR UNKNOWN INDICATION
     Dosage: UNK

REACTIONS (3)
  - Drug abuse [Recovering/Resolving]
  - Sopor [Recovering/Resolving]
  - Headache [Recovering/Resolving]
